FAERS Safety Report 9648748 (Version 4)
Quarter: 2014Q2

REPORT INFORMATION
  Report Type: Spontaneous
  Country: US (occurrence: US)
  Receive Date: 20131028
  Receipt Date: 20140418
  Transmission Date: 20141212
  Serious: No
  Sender: FDA-Public Use
  Company Number: US-PFIZER INC-2013307632

PATIENT
  Age: 80 Year
  Sex: Female
  Weight: 74.83 kg

DRUGS (2)
  1. CELEBREX [Suspect]
     Indication: ARTHRALGIA
     Dosage: UNK
  2. CELEBREX [Suspect]
     Dosage: 200 MG, 1X/DAY
     Dates: start: 2013

REACTIONS (6)
  - Drug ineffective [Unknown]
  - Abdominal pain upper [Unknown]
  - Pain [Unknown]
  - Musculoskeletal pain [Unknown]
  - Movement disorder [Unknown]
  - Back disorder [Unknown]
